FAERS Safety Report 10058677 (Version 1)
Quarter: 2014Q2

REPORT INFORMATION
  Report Type: Spontaneous
  Country: CA (occurrence: None)
  Receive Date: 20140402
  Receipt Date: 20140402
  Transmission Date: 20141212
  Serious: Yes (Other)
  Sender: FDA-Public Use
  Company Number: 2014P1002337

PATIENT
  Age: 46 Year
  Sex: Female

DRUGS (1)
  1. KARTICAINE FORTE [Suspect]
     Indication: LOCAL ANAESTHESIA
     Dosage: ;X1;
     Dates: start: 20140214, end: 20140214

REACTIONS (2)
  - Tachycardia [None]
  - Convulsion [None]
